FAERS Safety Report 6070212-2 (Version None)
Quarter: 2009Q1

REPORT INFORMATION
  Report Type: 
  Country: None (occurrence: None)
  Receive Date: 20090209
  Receipt Date: 20090127
  Transmission Date: 20090719
  Serious: Yes (Hospitalization, Disabling, Other)
  Sender: FDA-Public Use
  Company Number: US-ROCHE-600293

PATIENT
  Sex: Male
  Weight: 84.4 kg

DRUGS (2)
  1. PEGASYS [Suspect]
     Route: 058
     Dates: start: 20080121, end: 20081217
  2. COPEGUS [Suspect]
     Route: 048
     Dates: start: 20080121, end: 20081217

REACTIONS (3)
  - RENAL FAILURE ACUTE [None]
  - SARCOIDOSIS [None]
  - TUBULOINTERSTITIAL NEPHRITIS [None]
